FAERS Safety Report 24263595 (Version 3)
Quarter: 2024Q4

REPORT INFORMATION
  Report Type: Spontaneous
  Country: GB (occurrence: GB)
  Receive Date: 20240829
  Receipt Date: 20241122
  Transmission Date: 20250115
  Serious: No
  Sender: PFIZER
  Company Number: GB-PFIZER INC-PV202400107817

PATIENT
  Age: 9 Year
  Sex: Male

DRUGS (1)
  1. NGENLA [Suspect]
     Active Substance: SOMATROGON-GHLA
     Indication: Growth hormone deficiency
     Dosage: 14 MG, WEEKLY
     Route: 058

REACTIONS (2)
  - Device defective [Unknown]
  - Drug dose omission by device [Unknown]

NARRATIVE: CASE EVENT DATE: 20240811
